FAERS Safety Report 12647656 (Version 1)
Quarter: 2016Q3

REPORT INFORMATION
  Report Type: Spontaneous
  Country: US (occurrence: None)
  Receive Date: 20160811
  Receipt Date: 20160811
  Transmission Date: 20161109
  Serious: No
  Sender: FDA-Public Use
  Company Number: None

PATIENT
  Age: 58 Year
  Sex: Male

DRUGS (1)
  1. VOTRIENT [Suspect]
     Active Substance: PAZOPANIB HYDROCHLORIDE
     Indication: RENAL CANCER

REACTIONS (5)
  - Blood potassium abnormal [None]
  - Diarrhoea [None]
  - Disease progression [None]
  - Liver disorder [None]
  - Jaundice [None]

NARRATIVE: CASE EVENT DATE: 20160810
